FAERS Safety Report 13061657 (Version 1)
Quarter: 2016Q4

REPORT INFORMATION
  Report Type: Spontaneous
  Country: US (occurrence: US)
  Receive Date: 20161226
  Receipt Date: 20161226
  Transmission Date: 20170207
  Serious: No
  Sender: FDA-Public Use
  Company Number: US-NOVEN PHARMACEUTICALS, INC.-US2016001499

PATIENT

DRUGS (2)
  1. PROGESTERONE. [Concomitant]
     Active Substance: PROGESTERONE
  2. MINIVELLE [Suspect]
     Active Substance: ESTRADIOL
     Indication: HYSTERECTOMY
     Dosage: UNK, UNKNOWN
     Route: 062

REACTIONS (5)
  - Hot flush [Recovered/Resolved]
  - Drug ineffective [Unknown]
  - Crying [Recovered/Resolved]
  - Mood altered [Recovered/Resolved]
  - Arthralgia [Recovered/Resolved]
